FAERS Safety Report 20296162 (Version 1)
Quarter: 2022Q1

REPORT INFORMATION
  Report Type: Spontaneous
  Country: US (occurrence: US)
  Receive Date: 20220105
  Receipt Date: 20220105
  Transmission Date: 20220423
  Serious: Yes (Disabling, Other)
  Sender: FDA-Public Use
  Company Number: US-PURDUE-USA-2020-0273675

PATIENT
  Sex: Female

DRUGS (9)
  1. OXYCONTIN [Suspect]
     Active Substance: OXYCODONE HYDROCHLORIDE
     Indication: Pain management
     Dosage: 10 MG, Q12H
     Route: 048
  2. OXYCONTIN [Suspect]
     Active Substance: OXYCODONE HYDROCHLORIDE
     Dosage: 80 MG, DAILY
     Route: 048
  3. HYDROCODONE BITARTRATE AND ACETAMINOPHEN [Suspect]
     Active Substance: ACETAMINOPHEN\HYDROCODONE BITARTRATE
     Indication: Pain management
     Dosage: UNKNOWN
     Route: 048
  4. ACETAMINOPHEN\OXYCODONE HYDROCHLORIDE [Suspect]
     Active Substance: ACETAMINOPHEN\OXYCODONE HYDROCHLORIDE
     Indication: Pain management
     Dosage: UNKNOWN
     Route: 048
  5. OXYCODONE HYDROCHLORIDE [Suspect]
     Active Substance: OXYCODONE HYDROCHLORIDE
     Indication: Pain management
     Dosage: 5 MG, TABLETS DAILY
     Route: 048
  6. OXYCODONE [Suspect]
     Active Substance: OXYCODONE
     Indication: Pain management
     Dosage: 20 MG/ML, DAILY
     Route: 048
  7. FENTANYL [Suspect]
     Active Substance: FENTANYL
     Indication: Pain management
     Dosage: 100 MCG, QOD
     Route: 062
  8. METHADONE [Suspect]
     Active Substance: METHADONE HYDROCHLORIDE
     Indication: Pain management
     Dosage: UNKNOWN
     Route: 065
  9. HEROIN [Suspect]
     Active Substance: DIAMORPHINE
     Indication: Drug dependence
     Dosage: UNKNOWN
     Route: 065

REACTIONS (6)
  - Overdose [Unknown]
  - Drug dependence [Unknown]
  - Pain [Unknown]
  - Emotional distress [Unknown]
  - Product prescribing error [Unknown]
  - Unevaluable event [Unknown]
